FAERS Safety Report 7664417-4 (Version None)
Quarter: 2011Q3

REPORT INFORMATION
  Report Type: 
  Country: None (occurrence: None)
  Receive Date: 20110806
  Receipt Date: 20110217
  Transmission Date: 20111222
  Serious: No
  Sender: FDA-Public Use
  Company Number: US-ABBOTT-11P-163-0705813-00

PATIENT
  Sex: Male
  Weight: 112.59 kg

DRUGS (4)
  1. NIASPAN [Suspect]
     Dosage: AT NIGHT
     Dates: start: 20110210
  2. NIASPAN [Suspect]
     Indication: BLOOD CHOLESTEROL
  3. INSULIN [Concomitant]
     Indication: PRODUCT USED FOR UNKNOWN INDICATION
     Dosage: WITH EVERY MEAL
  4. ASPIRIN [Concomitant]
     Indication: PRODUCT USED FOR UNKNOWN INDICATION
     Dosage: EVERY NIGHT

REACTIONS (2)
  - PRURITUS [None]
  - FLUSHING [None]
